FAERS Safety Report 5109181-8 (Version None)
Quarter: 2006Q3

REPORT INFORMATION
  Report Type: 
  Country: None (occurrence: None)
  Receive Date: 20060920
  Receipt Date: 20060918
  Transmission Date: 20061208
  Serious: Yes (Death)
  Sender: FDA-Public Use
  Company Number: 2006AC01695

PATIENT
  Age: 71 Year
  Sex: Female

DRUGS (2)
  1. PROPOFOL [Suspect]
     Route: 042
  2. OXYGENATED FLUOROCARBON NUTRIENT EMULSION [Concomitant]
     Indication: CEREBRAL ISCHAEMIA
     Dosage: VENTRICULO-LUMBAR PERFUSION
     Route: 050

REACTIONS (2)
  - LACTIC ACIDOSIS [None]
  - MULTI-ORGAN FAILURE [None]
